FAERS Safety Report 4556741-9 (Version None)
Quarter: 2005Q1

REPORT INFORMATION
  Report Type: 
  Country: None (occurrence: None)
  Receive Date: 20050111
  Receipt Date: 20041005
  Transmission Date: 20050727
  Serious: Yes (Other)
  Sender: FDA-Public Use
  Company Number: 2004S1000214

PATIENT
  Age: 43 Year
  Sex: Male
  Weight: 125 kg

DRUGS (2)
  1. CUBICIN [Suspect]
     Indication: ARTHRITIS INFECTIVE
     Dosage: 4 MG/KG; X1; IV
     Route: 042
     Dates: start: 20041003, end: 20041003
  2. VANCOMYCIN [Concomitant]

REACTIONS (1)
  - DYSPNOEA [None]
